FAERS Safety Report 11891872 (Version 22)
Quarter: 2019Q2

REPORT INFORMATION
  Report Type: Spontaneous
  Country: US (occurrence: US)
  Receive Date: 20160106
  Receipt Date: 20190402
  Transmission Date: 20190711
  Serious: Yes (Other)
  Sender: FDA-Public Use
  Company Number: US-ACTELION PHARMACEUTICALS US, INC.-A-US2015-129373

PATIENT
  Age: 47 Year
  Sex: Female
  Weight: 122.45 kg

DRUGS (3)
  1. OPSUMIT [Suspect]
     Active Substance: MACITENTAN
     Dosage: 10 MG, QD
     Route: 048
     Dates: start: 20141008
  2. OPSUMIT [Suspect]
     Active Substance: MACITENTAN
     Indication: PULMONARY HYPERTENSION
     Dosage: 10 MG, QD
     Route: 048
  3. ADCIRCA [Concomitant]
     Active Substance: TADALAFIL
     Dosage: UNK

REACTIONS (44)
  - Hypoaesthesia [Unknown]
  - Oedema [Unknown]
  - Condition aggravated [Unknown]
  - Nocturnal dyspnoea [Unknown]
  - Hepatitis C [Unknown]
  - Chest pain [Unknown]
  - Paraesthesia [Unknown]
  - Emotional disorder [Unknown]
  - Crying [Unknown]
  - Ascites [Unknown]
  - Exercise tolerance decreased [Unknown]
  - Hepatic failure [Unknown]
  - Dyspnoea [Recovering/Resolving]
  - Headache [Unknown]
  - Stress [Unknown]
  - Anxiety [Unknown]
  - Nasopharyngitis [Unknown]
  - Blood pressure increased [Unknown]
  - Laryngitis [Unknown]
  - Chest discomfort [Unknown]
  - Dyspnoea exertional [Unknown]
  - Dysstasia [Unknown]
  - Heart valve incompetence [Unknown]
  - Dyspnoea at rest [Unknown]
  - Decreased activity [Unknown]
  - Nervousness [Unknown]
  - Fatigue [Unknown]
  - Dizziness [Unknown]
  - Weight increased [Unknown]
  - Back disorder [Unknown]
  - Pain in extremity [Unknown]
  - Pain [Unknown]
  - Pain in jaw [Unknown]
  - Palpitations [Unknown]
  - Peripheral swelling [Unknown]
  - Product dose omission [Unknown]
  - Malaise [Unknown]
  - Cardiac ablation [Unknown]
  - Flank pain [Unknown]
  - Blood potassium increased [Unknown]
  - Breast pain [Unknown]
  - Asthenia [Unknown]
  - Nausea [Unknown]
  - Diabetes mellitus [Unknown]

NARRATIVE: CASE EVENT DATE: 20151223
